FAERS Safety Report 13745029 (Version 1)
Quarter: 2017Q3

REPORT INFORMATION
  Report Type: Spontaneous
  Country: US (occurrence: US)
  Receive Date: 20170711
  Receipt Date: 20170711
  Transmission Date: 20171127
  Serious: Yes (Disabling, Other)
  Sender: FDA-Public Use
  Company Number: None

PATIENT
  Age: 63 Year
  Sex: Female
  Weight: 71.55 kg

DRUGS (7)
  1. ALPRAZOLAM 0.5 MG [Suspect]
     Active Substance: ALPRAZOLAM
     Indication: PANIC ATTACK
     Dosage: ?          OTHER STRENGTH:MG;QUANTITY:1 TABLET(S);?
     Route: 048
     Dates: start: 20170629, end: 20170710
  2. ALPRAZOLAM 0.5 MG [Suspect]
     Active Substance: ALPRAZOLAM
     Indication: ANXIETY
     Dosage: ?          OTHER STRENGTH:MG;QUANTITY:1 TABLET(S);?
     Route: 048
     Dates: start: 20170629, end: 20170710
  3. LEG CRAMP MEDICATION [Concomitant]
  4. TYLENOL [Concomitant]
     Active Substance: ACETAMINOPHEN
  5. MINIVELLE-PATCH (ESTROGEN REPLACEMENT) [Concomitant]
  6. LISINOPRIL. [Concomitant]
     Active Substance: LISINOPRIL
  7. STRESS TABS VITAMINS [Concomitant]

REACTIONS (7)
  - Heart rate increased [None]
  - Product substitution issue [None]
  - Diarrhoea [None]
  - Product taste abnormal [None]
  - Product coating issue [None]
  - Product colour issue [None]
  - Quality of life decreased [None]

NARRATIVE: CASE EVENT DATE: 20170630
